FAERS Safety Report 7161379-3 (Version None)
Quarter: 2010Q4

REPORT INFORMATION
  Report Type: 
  Country: None (occurrence: None)
  Receive Date: 20101215
  Receipt Date: 20100212
  Transmission Date: 20110411
  Serious: No
  Sender: FDA-Public Use
  Company Number: US-MYLANLABS-2010S1002301

PATIENT
  Age: 69 Year
  Sex: Female

DRUGS (2)
  1. DIPHENOXYLATE HYDROCHLORIDE AND ATROPINE SULFATE TABLETS [Suspect]
     Indication: DIARRHOEA
     Route: 048
     Dates: start: 20091101, end: 20091101
  2. DIPHENOXYLATE HYDROCHLORIDE AND ATROPINE SULFATE TABLETS [Suspect]
     Route: 048
     Dates: start: 20091201

REACTIONS (2)
  - DIARRHOEA [None]
  - DRUG INEFFECTIVE [None]
